FAERS Safety Report 25864652 (Version 4)
Quarter: 2025Q4

REPORT INFORMATION
  Report Type: Spontaneous
  Country: EU (occurrence: EU)
  Receive Date: 20250930
  Receipt Date: 20251121
  Transmission Date: 20260118
  Serious: No
  Sender: PFIZER
  Company Number: EU-PFIZER INC-PV202500115673

PATIENT
  Age: 9 Year
  Sex: Male
  Weight: 22 kg

DRUGS (2)
  1. GENOTROPIN [Suspect]
     Active Substance: SOMATROPIN
     Indication: Hypopituitarism
     Dosage: 0.6MG DAILY (6 DAYS A WEEK), 0.8MG (1 TIME A WEEK) / 7 DAYS
     Route: 058
     Dates: start: 202412
  2. ARIMIDEX [Concomitant]
     Active Substance: ANASTROZOLE
     Indication: Hypopituitarism
     Dosage: 1 MG, 1X1

REACTIONS (4)
  - Product communication issue [Unknown]
  - Wrong technique in device usage process [Unknown]
  - Device leakage [Unknown]
  - Drug dose omission by device [Unknown]

NARRATIVE: CASE EVENT DATE: 20250924
